FAERS Safety Report 7412631-5 (Version None)
Quarter: 2011Q2

REPORT INFORMATION
  Report Type: 
  Country: None (occurrence: None)
  Receive Date: 20110404
  Receipt Date: 20100525
  Transmission Date: 20111010
  Serious: Yes (Life-Threatening, Other)
  Sender: FDA-Public Use
  Company Number: 2011MA002854

PATIENT
  Age: 44 Year
  Sex: Female

DRUGS (7)
  1. CHLORHEXIDINE GLUCONATE [Concomitant]
  2. CODEINE LINCTUS PEG [Concomitant]
  3. CODEINE [Concomitant]
  4. CETIRIZINE HCL [Concomitant]
  5. PACLITAXEL [Suspect]
     Indication: CHEMOTHERAPY
     Dosage: 136 MG; X1; IV
     Route: 042
     Dates: start: 20100512, end: 20100512
  6. METOCLOPRAMIDE [Concomitant]
  7. CHLORPHENAMINE [Concomitant]

REACTIONS (4)
  - DYSPNOEA [None]
  - PRESYNCOPE [None]
  - FLUSHING [None]
  - OXYGEN SATURATION DECREASED [None]
